FAERS Safety Report 17282528 (Version 2)
Quarter: 2020Q2

REPORT INFORMATION
  Report Type: Report from Study
  Country: CA (occurrence: CA)
  Receive Date: 20200117
  Receipt Date: 20200602
  Transmission Date: 20200713
  Serious: Yes (Other)
  Sender: FDA-Public Use
  Company Number: CA-JNJFOC-20200125575

PATIENT
  Sex: Female

DRUGS (4)
  1. SIMPONI [Suspect]
     Active Substance: GOLIMUMAB
     Indication: PSORIATIC ARTHROPATHY
     Route: 058
     Dates: start: 20180504
  2. EUROFER                            /01529801/ [Concomitant]
     Dates: start: 20190131
  3. SIMPONI [Suspect]
     Active Substance: GOLIMUMAB
     Route: 058
     Dates: start: 20190409
  4. CANDESARTAN/HCT [Concomitant]
     Active Substance: CANDESARTAN CILEXETIL\HYDROCHLOROTHIAZIDE
     Dates: start: 20200205

REACTIONS (6)
  - Spondyloarthropathy [Unknown]
  - Psoriatic arthropathy [Unknown]
  - Breast cancer [Unknown]
  - Helicobacter infection [Unknown]
  - Osteoporosis [Unknown]
  - Hyperparathyroidism [Unknown]

NARRATIVE: CASE EVENT DATE: 2018
